FAERS Safety Report 24720456 (Version 1)
Quarter: 2024Q4

REPORT INFORMATION
  Report Type: Spontaneous
  Country: JP (occurrence: JP)
  Receive Date: 20241211
  Receipt Date: 20241211
  Transmission Date: 20250115
  Serious: Yes (Other)
  Sender: GENMAB
  Company Number: JP-GENMAB-2024-04507

PATIENT
  Age: 83 Year
  Sex: Female

DRUGS (1)
  1. EPKINLY [Suspect]
     Active Substance: EPCORITAMAB-BYSP
     Indication: Diffuse large B-cell lymphoma refractory
     Dosage: UNK, CYCLE 1
     Route: 065

REACTIONS (1)
  - Diffuse large B-cell lymphoma refractory [Unknown]
